FAERS Safety Report 19964239 (Version 1)
Quarter: 2021Q4

REPORT INFORMATION
  Report Type: Report from Study
  Country: IT (occurrence: IT)
  Receive Date: 20211018
  Receipt Date: 20211018
  Transmission Date: 20220303
  Serious: Yes (Other)
  Sender: FDA-Public Use
  Company Number: None

PATIENT
  Age: 66 Year
  Sex: Female

DRUGS (1)
  1. ZOLPIDEM [Suspect]
     Active Substance: ZOLPIDEM TARTRATE
     Indication: Insomnia
     Dosage: 20 MILLIGRAM
     Dates: start: 20210826

REACTIONS (7)
  - Hallucination, visual [Recovering/Resolving]
  - Presyncope [Recovering/Resolving]
  - Gait disturbance [Recovering/Resolving]
  - Malaise [Recovering/Resolving]
  - Confusional state [Recovering/Resolving]
  - Medication error [Recovering/Resolving]
  - Expired product administered [Recovering/Resolving]

NARRATIVE: CASE EVENT DATE: 20210827
